FAERS Safety Report 11257932 (Version 1)
Quarter: 2015Q3

REPORT INFORMATION
  Report Type: Spontaneous
  Country: US (occurrence: None)
  Receive Date: 20150708
  Receipt Date: 20150708
  Transmission Date: 20151125
  Serious: Yes (Life-Threatening, Hospitalization)
  Sender: FDA-Public Use
  Company Number: US-2015BDS000117

PATIENT
  Sex: Male

DRUGS (3)
  1. FENTANYL. [Suspect]
     Active Substance: FENTANYL
     Indication: DRUG ABUSE
  2. HEROIN [Suspect]
     Active Substance: DIACETYLMORPHINE
     Indication: DRUG ABUSE
  3. BUPRENORPHINE W/NALOXONE (BUPRENORPHINE, NALOXONE) [Concomitant]

REACTIONS (6)
  - Drug abuse [None]
  - Cyanosis [None]
  - Treatment noncompliance [None]
  - Accidental overdose [None]
  - Loss of consciousness [None]
  - Unresponsive to stimuli [None]
